FAERS Safety Report 5730471-X (Version None)
Quarter: 2008Q2

REPORT INFORMATION
  Report Type: 
  Country: None (occurrence: None)
  Receive Date: 20080507
  Receipt Date: 20080430
  Transmission Date: 20081010
  Serious: Yes (Death)
  Sender: FDA-Public Use
  Company Number: US-JNJFOC-20080500351

PATIENT
  Sex: Female

DRUGS (2)
  1. PANCREASE MT [Suspect]
     Route: 048
  2. PANCREASE MT [Suspect]
     Indication: LIVER TRANSPLANT
     Route: 048

REACTIONS (1)
  - PANCREATIC CARCINOMA [None]
